FAERS Safety Report 4994565-9 (Version None)
Quarter: 2006Q2

REPORT INFORMATION
  Report Type: 
  Country: None (occurrence: None)
  Receive Date: 20060505
  Receipt Date: 20060223
  Transmission Date: 20061013
  Serious: Yes (Hospitalization)
  Sender: FDA-Public Use
  Company Number: US-MERCK-0603USA00004

PATIENT
  Age: 48 Year
  Sex: Female

DRUGS (7)
  1. CLINORIL [Concomitant]
     Indication: ARTHRALGIA
     Route: 048
  2. CLINORIL [Concomitant]
     Indication: TENDONITIS
     Route: 048
  3. VIOXX [Suspect]
     Route: 048
  4. VALTREX [Concomitant]
     Route: 048
  5. ZESTRIL [Concomitant]
     Route: 048
  6. AMBIEN [Concomitant]
     Indication: INSOMNIA
     Route: 048
  7. ZOCOR [Concomitant]
     Route: 048

REACTIONS (16)
  - BASILAR ARTERY OCCLUSION [None]
  - BILIARY DYSKINESIA [None]
  - CEREBRAL INFARCTION [None]
  - COLONIC POLYP [None]
  - EJECTION FRACTION DECREASED [None]
  - GASTRITIS [None]
  - GASTROOESOPHAGEAL REFLUX DISEASE [None]
  - HERPES VIRUS INFECTION [None]
  - HYPERTENSION [None]
  - INSOMNIA [None]
  - INTERVERTEBRAL DISC DEGENERATION [None]
  - INTERVERTEBRAL DISC PROTRUSION [None]
  - MITRAL VALVE INCOMPETENCE [None]
  - SPINAL OSTEOARTHRITIS [None]
  - TRICUSPID VALVE INCOMPETENCE [None]
  - VENTRICULAR HYPERTROPHY [None]
